FAERS Safety Report 7503218-4 (Version None)
Quarter: 2011Q2

REPORT INFORMATION
  Report Type: 
  Country: None (occurrence: None)
  Receive Date: 20110525
  Receipt Date: 20101026
  Transmission Date: 20111010
  Serious: No
  Sender: FDA-Public Use
  Company Number: A0888810A

PATIENT
  Age: 47 Year
  Sex: Female

DRUGS (2)
  1. BIRTH CONTROL PILLS [Concomitant]
  2. BACTROBAN [Suspect]
     Indication: INFECTION
     Dosage: 1APP THREE TIMES PER DAY
     Route: 058
     Dates: start: 20101023

REACTIONS (1)
  - RASH [None]
